FAERS Safety Report 16901710 (Version 1)
Quarter: 2019Q4

REPORT INFORMATION
  Report Type: Spontaneous
  Country: US (occurrence: US)
  Receive Date: 20191010
  Receipt Date: 20191010
  Transmission Date: 20200122
  Serious: No
  Sender: FDA-Public Use
  Company Number: US-NEUROCRINE BIOSCIENCES INC.-2019NBI02885

PATIENT
  Age: 70 Year
  Sex: Female

DRUGS (2)
  1. INGREZZA [Suspect]
     Active Substance: VALBENAZINE
     Indication: PRODUCT USED FOR UNKNOWN INDICATION
     Dates: start: 201908, end: 2019
  2. INGREZZA [Suspect]
     Active Substance: VALBENAZINE
     Dates: start: 2019, end: 2019

REACTIONS (3)
  - Rash macular [Unknown]
  - Urticaria [Unknown]
  - Periorbital oedema [Unknown]

NARRATIVE: CASE EVENT DATE: 2019
